FAERS Safety Report 7039842-5 (Version None)
Quarter: 2010Q4

REPORT INFORMATION
  Report Type: 
  Country: None (occurrence: None)
  Receive Date: 20101012
  Receipt Date: 20100929
  Transmission Date: 20110411
  Serious: Yes (Other)
  Sender: FDA-Public Use
  Company Number: AT-ELI_LILLY_AND_COMPANY-AT201010000701

PATIENT
  Age: 25 Year
  Sex: Female

DRUGS (5)
  1. ZYPREXA [Suspect]
     Dosage: 20 MG, DAILY (1/D)
     Route: 065
     Dates: start: 20100711
  2. NOZINAN [Concomitant]
     Dosage: 160 MG, UNKNOWN
     Route: 065
     Dates: start: 20100711
  3. NOZINAN [Concomitant]
     Dosage: 540 MG, UNKNOWN
     Route: 065
     Dates: start: 20100712
  4. NOZINAN [Concomitant]
     Dosage: 160 MG, UNKNOWN
     Route: 065
     Dates: start: 20100713, end: 20100718
  5. NOZINAN [Concomitant]
     Dosage: 80 MG, UNKNOWN
     Route: 065
     Dates: start: 20100719

REACTIONS (1)
  - GALACTORRHOEA [None]
